FAERS Safety Report 5355959-5 (Version None)
Quarter: 2007Q2

REPORT INFORMATION
  Report Type: 
  Country: None (occurrence: None)
  Receive Date: 20070613
  Receipt Date: 20070606
  Transmission Date: 20071010
  Serious: Yes (Death)
  Sender: FDA-Public Use
  Company Number: US-SANOFI-SYNTHELABO-A03200703621

PATIENT
  Age: 98 Year
  Sex: Male

DRUGS (4)
  1. TOPROL-XL [Concomitant]
     Dosage: UNK
     Route: 048
  2. ALTACE [Concomitant]
     Dosage: UNK
     Route: 048
  3. PRAVACHOL [Concomitant]
     Route: 048
  4. PLAVIX [Suspect]
     Indication: MYOCARDIAL INFARCTION
     Route: 048

REACTIONS (1)
  - PROSTATE CANCER [None]
